FAERS Safety Report 12502309 (Version 2)
Quarter: 2016Q3

REPORT INFORMATION
  Report Type: Spontaneous
  Country: GB (occurrence: GB)
  Receive Date: 20160627
  Receipt Date: 20160815
  Transmission Date: 20161109
  Serious: Yes (Other)
  Sender: FDA-Public Use
  Company Number: GB-ALLERGAN-1660878US

PATIENT
  Age: 50 Year
  Sex: Female
  Weight: 63 kg

DRUGS (1)
  1. BOTOX [Suspect]
     Active Substance: ONABOTULINUMTOXINA
     Indication: SKIN WRINKLING
     Dosage: 32 UNITS, SINGLE
     Route: 051
     Dates: start: 20160527, end: 20160527

REACTIONS (3)
  - Neck pain [Not Recovered/Not Resolved]
  - Off label use [Unknown]
  - Dysphagia [Not Recovered/Not Resolved]
